FAERS Safety Report 8062038-5 (Version None)
Quarter: 2012Q1

REPORT INFORMATION
  Report Type: 
  Country: None (occurrence: None)
  Receive Date: 20120123
  Receipt Date: 20120118
  Transmission Date: 20120608
  Serious: Yes (Life-Threatening)
  Sender: FDA-Public Use
  Company Number: US-CELGENEUS-163-21880-12011923

PATIENT
  Sex: Female

DRUGS (7)
  1. BENICAR [Concomitant]
     Dosage: 40-12.5MG
     Route: 065
  2. ASPIRIN [Concomitant]
     Dosage: 81 MILLIGRAM
     Route: 065
  3. REVLIMID [Suspect]
     Dosage: 10 MILLIGRAM
     Route: 048
     Dates: start: 20110601
  4. ZOMETA [Concomitant]
     Dosage: 4 MILLIGRAM
     Route: 065
  5. GABAPENTIN [Concomitant]
     Dosage: 300 MILLIGRAM
     Route: 065
  6. REVLIMID [Suspect]
     Indication: MULTIPLE MYELOMA
     Dosage: 25 MILLIGRAM
     Route: 048
     Dates: start: 20101001
  7. OXYCONTIN [Concomitant]
     Dosage: 10 MILLIGRAM
     Route: 065

REACTIONS (2)
  - PAIN [None]
  - MYELOMA RECURRENCE [None]
